FAERS Safety Report 9801182 (Version 6)
Quarter: 2014Q3

REPORT INFORMATION
  Report Type: Spontaneous
  Country: US (occurrence: US)
  Receive Date: 20140107
  Receipt Date: 20140801
  Transmission Date: 20150326
  Serious: Yes (Disabling)
  Sender: FDA-Public Use
  Company Number: US-009507513-1202USA00544

PATIENT
  Sex: Male

DRUGS (3)
  1. FINASTERIDE. [Suspect]
     Active Substance: FINASTERIDE
     Indication: ALOPECIA
     Dosage: 5 MG, QD
     Dates: start: 20080423, end: 20110717
  2. PROPECIA [Suspect]
     Active Substance: FINASTERIDE
     Indication: ALOPECIA
  3. PROPECIA [Suspect]
     Active Substance: FINASTERIDE
     Indication: ANDROGENETIC ALOPECIA
     Dosage: 1 MG, QD
     Route: 048
     Dates: start: 20080423, end: 20110717

REACTIONS (14)
  - Anxiety [Unknown]
  - Hypogonadism [Recovering/Resolving]
  - Gynaecomastia [Not Recovered/Not Resolved]
  - Fatigue [Recovering/Resolving]
  - Sleep disorder [Recovered/Resolved]
  - Depression [Recovering/Resolving]
  - Mood altered [Recovered/Resolved]
  - Sexual dysfunction [Not Recovered/Not Resolved]
  - Disturbance in attention [Recovered/Resolved]
  - Drug administration error [Unknown]
  - Testicular disorder [Recovering/Resolving]
  - Asthenia [Recovered/Resolved]
  - Cognitive disorder [Not Recovered/Not Resolved]
  - Loss of libido [Recovered/Resolved]

NARRATIVE: CASE EVENT DATE: 2008
